FAERS Safety Report 21361016 (Version 4)
Quarter: 2023Q2

REPORT INFORMATION
  Report Type: Report from Study
  Country: US (occurrence: US)
  Receive Date: 20220921
  Receipt Date: 20230609
  Transmission Date: 20230722
  Serious: Yes (Other)
  Sender: FDA-Public Use
  Company Number: US-PFIZER INC-PV202200067032

PATIENT
  Age: 62 Year
  Sex: Male

DRUGS (4)
  1. BRAFTOVI [Suspect]
     Active Substance: ENCORAFENIB
     Indication: Malignant melanoma
     Dosage: 450 MG, 1X/DAY
  2. BRAFTOVI [Suspect]
     Active Substance: ENCORAFENIB
     Dosage: 300 MG, 1X/DAY
     Route: 048
     Dates: start: 20220914
  3. MEKTOVI [Suspect]
     Active Substance: BINIMETINIB
     Indication: Malignant melanoma
     Dosage: 45 MG, 2X/DAY
  4. MEKTOVI [Suspect]
     Active Substance: BINIMETINIB
     Dosage: 30 MG, 2X/DAY
     Route: 048
     Dates: start: 20220914

REACTIONS (20)
  - Neuropathy peripheral [Unknown]
  - Fracture [Unknown]
  - Nausea [Unknown]
  - Myalgia [Unknown]
  - Arthralgia [Unknown]
  - Hepatic enzyme increased [Unknown]
  - Abdominal pain [Unknown]
  - Decreased appetite [Unknown]
  - Eye disorder [Unknown]
  - Fatigue [Unknown]
  - Pyrexia [Unknown]
  - Chills [Unknown]
  - Feeling cold [Unknown]
  - Peripheral swelling [Unknown]
  - Joint swelling [Unknown]
  - Skin discolouration [Unknown]
  - Vomiting [Unknown]
  - Muscular weakness [Unknown]
  - Dyspnoea [Recovered/Resolved]
  - Bone disorder [Unknown]
